FAERS Safety Report 17943852 (Version 2)
Quarter: 2020Q3

REPORT INFORMATION
  Report Type: Spontaneous
  Country: US (occurrence: US)
  Receive Date: 20200625
  Receipt Date: 20200702
  Transmission Date: 20201103
  Serious: Yes (Other)
  Sender: FDA-Public Use
  Company Number: US-AKORN PHARMACEUTICALS-2020AKN00808

PATIENT
  Age: 17 Year
  Sex: Female
  Weight: 56.69 kg

DRUGS (2)
  1. MYORISAN [Suspect]
     Active Substance: ISOTRETINOIN
     Dosage: 30 MG, 1X/DAY
     Route: 048
     Dates: start: 20200526, end: 202006
  2. NORGESTIMATE?ETHINYL ESTRADIOL [Concomitant]
     Active Substance: ETHINYL ESTRADIOL\NORGESTIMATE
     Dosage: UNK

REACTIONS (5)
  - Off label use [Recovered/Resolved]
  - Agitation [Unknown]
  - Mood altered [Unknown]
  - Anger [Unknown]
  - Depressed mood [Unknown]

NARRATIVE: CASE EVENT DATE: 2020
